FAERS Safety Report 16288680 (Version 1)
Quarter: 2019Q2

REPORT INFORMATION
  Report Type: Report from Study
  Country: None (occurrence: BE)
  Receive Date: 20190509
  Receipt Date: 20190509
  Transmission Date: 20190711
  Serious: Yes (Other)
  Sender: FDA-Public Use
  Company Number: BE-ABBVIE-19S-013-2736816-00

PATIENT
  Sex: Male

DRUGS (9)
  1. DUODOPA [Suspect]
     Active Substance: CARBIDOPA\LEVODOPA
     Dosage: DOSES CONTINUOUSLY MONITORED AND ADAPTED
     Route: 050
     Dates: start: 20180925, end: 20190129
  2. STALEVO 150 [Concomitant]
     Indication: PARKINSON^S DISEASE
     Dosage: FORM STRENGTH: 150MG/37.5MG/200MG
     Route: 048
  3. XALATAN [Concomitant]
     Active Substance: LATANOPROST
     Indication: PRODUCT USED FOR UNKNOWN INDICATION
     Dosage: FORM STRENGTH: 50 MICROGRAM/MILLILITRES
     Route: 065
  4. DAFALGAN FORTE [Concomitant]
     Indication: PRODUCT USED FOR UNKNOWN INDICATION
     Dosage: 4 TIMES A DAY, IF NEEDED
     Route: 065
  5. REQUIP [Concomitant]
     Active Substance: ROPINIROLE HYDROCHLORIDE
     Indication: PRODUCT USED FOR UNKNOWN INDICATION
     Route: 065
  6. ZAFFRANAX [Concomitant]
     Indication: PRODUCT USED FOR UNKNOWN INDICATION
     Route: 065
  7. DUODOPA [Suspect]
     Active Substance: CARBIDOPA\LEVODOPA
     Indication: PARKINSON^S DISEASE
     Dosage: MD=7ML, CD=2.7ML/HR DURING 16HRS, ED=2ML
     Route: 050
     Dates: start: 20180924, end: 20180925
  8. DUODOPA [Suspect]
     Active Substance: CARBIDOPA\LEVODOPA
     Dosage: MD=6ML, CD=4.5ML/HR DURING 16HRS, ED=2.5ML
     Route: 050
     Dates: start: 20190129
  9. STALEVO 150 [Concomitant]
     Dosage: FORM STRENGTH: 150MG/37.5MG/200MG, RESCUE MEDICATION, EVERY 3 HOURS
     Route: 065

REACTIONS (3)
  - Device alarm issue [Unknown]
  - Colon cancer [Unknown]
  - Occult blood positive [Unknown]
